FAERS Safety Report 5921837-3 (Version None)
Quarter: 2008Q4

REPORT INFORMATION
  Report Type: 
  Country: None (occurrence: None)
  Receive Date: 20081016
  Receipt Date: 20081016
  Transmission Date: 20090506
  Serious: Yes (Life-Threatening, Hospitalization, Disabling)
  Sender: FDA-Public Use
  Company Number: None

PATIENT
  Age: 65 Year
  Sex: Female
  Weight: 81.6475 kg

DRUGS (1)
  1. CRESTOR [Suspect]
     Indication: BLOOD CHOLESTEROL INCREASED
     Dosage: 5MGS AT NIGHT 1 PO  2 NIGHTS
     Route: 048
     Dates: start: 20081006, end: 20081007

REACTIONS (3)
  - HYPOGLYCAEMIA [None]
  - MIGRAINE [None]
  - WRONG TECHNIQUE IN DRUG USAGE PROCESS [None]
